FAERS Safety Report 13605867 (Version 1)
Quarter: 2017Q2

REPORT INFORMATION
  Report Type: Spontaneous
  Country: US (occurrence: US)
  Receive Date: 20170602
  Receipt Date: 20170602
  Transmission Date: 20170830
  Serious: No
  Sender: FDA-Public Use
  Company Number: US-NOVEN PHARMACEUTICALS, INC.-US2016001595

PATIENT

DRUGS (9)
  1. IMODIUM A-D [Concomitant]
     Active Substance: LOPERAMIDE HYDROCHLORIDE
     Dosage: 4 MG, UNK
  2. SODIUM BICARBONATE. [Concomitant]
     Active Substance: SODIUM BICARBONATE
  3. QVAR [Concomitant]
     Active Substance: BECLOMETHASONE DIPROPIONATE
  4. DIFLUCAN [Concomitant]
     Active Substance: FLUCONAZOLE
  5. DAYTRANA [Suspect]
     Active Substance: METHYLPHENIDATE
     Indication: ATTENTION DEFICIT/HYPERACTIVITY DISORDER
     Dosage: 30 MG, UNKNOWN
     Route: 062
     Dates: end: 20160617
  6. VERTEX [Concomitant]
     Indication: HYPERSENSITIVITY
     Dosage: 2 MG, UNK
  7. VITAMINS A D E WITH SELENIUM [Concomitant]
  8. TENEX [Concomitant]
     Active Substance: GUANFACINE HYDROCHLORIDE
     Dosage: 2 MG, UNK
  9. AUGMENTIN SR [Concomitant]
     Dosage: 1000 MG, UNK

REACTIONS (5)
  - Somnolence [Not Recovered/Not Resolved]
  - Off label use [Unknown]
  - Drug dose omission [Not Recovered/Not Resolved]
  - Therapeutic response unexpected [Unknown]
  - Insomnia [Not Recovered/Not Resolved]

NARRATIVE: CASE EVENT DATE: 20160617
